FAERS Safety Report 12944300 (Version 1)
Quarter: 2016Q4

REPORT INFORMATION
  Report Type: Spontaneous
  Country: JP (occurrence: JP)
  Receive Date: 20161115
  Receipt Date: 20161115
  Transmission Date: 20170207
  Serious: Yes (Other)
  Sender: FDA-Public Use
  Company Number: JP-SUCAMPO PHARMACEUTICALS INC.-SPI201601244

PATIENT
  Age: 69 Year
  Sex: Female

DRUGS (2)
  1. AMITIZA [Suspect]
     Active Substance: LUBIPROSTONE
     Indication: BOWEL PREPARATION
     Dosage: 24 MCG, QD
     Route: 048
  2. GASTROGRAFIN [Concomitant]
     Active Substance: DIATRIZOATE MEGLUMINE\DIATRIZOATE SODIUM
     Indication: BOWEL PREPARATION
     Dosage: 50 ML, QD
     Route: 048

REACTIONS (3)
  - Off label use [Unknown]
  - Dehydration [Recovering/Resolving]
  - Diarrhoea [Recovering/Resolving]
